FAERS Safety Report 17769177 (Version 1)
Quarter: 2020Q2

REPORT INFORMATION
  Report Type: Spontaneous
  Country: IT (occurrence: IT)
  Receive Date: 20200512
  Receipt Date: 20200512
  Transmission Date: 20200714
  Serious: Yes (Hospitalization)
  Sender: FDA-Public Use
  Company Number: IT-TEVA-2020-IT-1233881

PATIENT
  Age: 64 Year
  Sex: Male

DRUGS (3)
  1. TACROLIMUS. [Suspect]
     Active Substance: TACROLIMUS
     Indication: IMMUNOSUPPRESSANT DRUG THERAPY
     Dosage: MAINTENANCE IMMUNOSUPPRESSIVE REGIMEN
     Route: 065
  2. MYCOPHENOLATE ACID [Suspect]
     Active Substance: MYCOPHENOLIC ACID
     Indication: IMMUNOSUPPRESSANT DRUG THERAPY
     Dosage: MAINTENANCE IMMUNOSUPPRESSIVE REGIMEN
     Route: 065
  3. PREDNISONE. [Suspect]
     Active Substance: PREDNISONE
     Indication: IMMUNOSUPPRESSANT DRUG THERAPY
     Dosage: MAINTENANCE IMMUNOSUPPRESSIVE REGIMEN
     Route: 065

REACTIONS (2)
  - Progressive multifocal leukoencephalopathy [Recovering/Resolving]
  - JC virus infection [Recovered/Resolved]
